FAERS Safety Report 6407487-3 (Version None)
Quarter: 2009Q4

REPORT INFORMATION
  Report Type: 
  Country: None (occurrence: None)
  Receive Date: 20091020
  Receipt Date: 20091009
  Transmission Date: 20100525
  Serious: Yes (Other)
  Sender: FDA-Public Use
  Company Number: BR-JNJFOC-20091003571

PATIENT
  Age: 15 Year
  Sex: Male

DRUGS (1)
  1. INVEGA [Suspect]
     Indication: NEUROSIS
     Route: 048

REACTIONS (3)
  - CONVULSION [None]
  - MUSCULOSKELETAL STIFFNESS [None]
  - TRISMUS [None]
